FAERS Safety Report 4407848-8 (Version None)
Quarter: 2004Q3

REPORT INFORMATION
  Report Type: 
  Country: None (occurrence: None)
  Receive Date: 20040726
  Receipt Date: 20040715
  Transmission Date: 20050211
  Serious: Yes (Other)
  Sender: FDA-Public Use
  Company Number: GB-GLAXOSMITHKLINE-B0339637A

PATIENT
  Age: 36 Year
  Sex: Male

DRUGS (3)
  1. LITHIUM [Suspect]
     Route: 065
  2. CLOZARIL [Suspect]
     Indication: SCHIZOPHRENIA
     Route: 048
     Dates: start: 20030509
  3. VALPROATE SODIUM [Concomitant]

REACTIONS (2)
  - NEPHRITIS INTERSTITIAL [None]
  - THERAPEUTIC AGENT TOXICITY [None]
